FAERS Safety Report 16048842 (Version 2)
Quarter: 2019Q1

REPORT INFORMATION
  Report Type: Spontaneous
  Country: CN (occurrence: CN)
  Receive Date: 20190307
  Receipt Date: 20190324
  Transmission Date: 20190418
  Serious: Yes (Hospitalization)
  Sender: FDA-Public Use
  Company Number: PHHY2019CN048876

PATIENT

DRUGS (1)
  1. VOTRIENT [Suspect]
     Active Substance: PAZOPANIB HYDROCHLORIDE
     Indication: RENAL CANCER
     Dosage: 1 DF, QD
     Route: 048
     Dates: start: 201902

REACTIONS (8)
  - Transaminases increased [Recovered/Resolved]
  - Platelet count abnormal [Recovering/Resolving]
  - Pyrexia [Not Recovered/Not Resolved]
  - Localised oedema [Unknown]
  - Generalised oedema [Recovering/Resolving]
  - Proteinuria [Recovered/Resolved]
  - Gingival bleeding [Recovered/Resolved]
  - Oedema peripheral [Unknown]
